FAERS Safety Report 5920258-7 (Version None)
Quarter: 2008Q4

REPORT INFORMATION
  Report Type: 
  Country: None (occurrence: None)
  Receive Date: 20081014
  Receipt Date: 20080926
  Transmission Date: 20090506
  Serious: Yes (Disabling)
  Sender: FDA-Public Use
  Company Number: 2008AL002467

PATIENT
  Age: 78 Year
  Sex: Female

DRUGS (5)
  1. GABAPENTIN [Suspect]
     Indication: PALINDROMIC RHEUMATISM
     Dosage: 300 MG; PO
     Route: 048
     Dates: start: 20070709, end: 20071015
  2. PREDNISOLONE [Concomitant]
  3. ALENDRONATE SODIUM [Concomitant]
  4. LEVOTHYROXINE SODIUM [Concomitant]
  5. RANITIDINE [Concomitant]

REACTIONS (1)
  - CHORIORETINAL ATROPHY [None]
